FAERS Safety Report 8917198 (Version 1)
Quarter: 2012Q4

REPORT INFORMATION
  Report Type: 
  Country: NL (occurrence: NL)
  Receive Date: 20121120
  Receipt Date: 20121120
  Transmission Date: 20130627
  Serious: Yes (Hospitalization, Other)
  Sender: FDA-Public Use
  Company Number: NL-PFIZER INC-2012289457

PATIENT
  Age: 70 Year
  Sex: Male

DRUGS (8)
  1. ATORVASTATIN CALCIUM [Suspect]
     Dosage: UNK
     Dates: start: 2008
  2. FENPROCOUMON [Concomitant]
     Indication: ANTICOAGULANT THERAPY
     Dosage: UNK
     Dates: start: 2008
  3. LATANOPROST [Concomitant]
     Dosage: 1 Gtt, 1x/day in both eyes
  4. DORZOLAMIDE [Concomitant]
     Dosage: 1 Gtt, 2x/day in both eyes
  5. LERCANIDIPINE [Concomitant]
     Dosage: 10 mg, 1x/day
  6. LABETALOL [Concomitant]
     Dosage: 400 mg, 3x/day
  7. HYDROCHLOROTHIAZID [Concomitant]
     Dosage: 25 mg, 1x/day
  8. COVERSYL [Concomitant]
     Dosage: 10 mg, 1x/day

REACTIONS (2)
  - Haematoma [Unknown]
  - International normalised ratio increased [Unknown]
